FAERS Safety Report 5494937-2 (Version None)
Quarter: 2007Q4

REPORT INFORMATION
  Report Type: 
  Country: None (occurrence: None)
  Receive Date: 20071024
  Receipt Date: 20071022
  Transmission Date: 20080405
  Serious: Yes (Other)
  Sender: FDA-Public Use
  Company Number: A0688961A

PATIENT
  Sex: Female

DRUGS (5)
  1. COREG CR [Suspect]
     Indication: HYPERTENSION
     Dosage: 20MG PER DAY
     Route: 048
     Dates: start: 20070901
  2. ADVAIR DISKUS 100/50 [Suspect]
     Indication: ASTHMA
     Dosage: 1PUFF UNKNOWN
     Route: 055
  3. ALLERGY MEDICATION [Suspect]
     Indication: SEASONAL ALLERGY
     Route: 065
  4. SINGULAIR [Concomitant]
  5. ALBUTEROL [Concomitant]

REACTIONS (2)
  - AGGRESSION [None]
  - PERIPHERAL COLDNESS [None]
